FAERS Safety Report 9251246 (Version 1)
Quarter: 2013Q1

REPORT INFORMATION
  Report Type: Spontaneous
  Country: US (occurrence: None)
  Receive Date: 20130305
  Receipt Date: 20130305
  Transmission Date: 20140127
  Serious: Yes (Hospitalization)
  Sender: FDA-Public Use
  Company Number: 163-21880-12090349

PATIENT
  Age: 52 Year
  Sex: Male
  Weight: 99.8 kg

DRUGS (11)
  1. REVLIMID (LENALIDOMIDE) (CAPSULES) [Suspect]
     Indication: PLASMA CELL MYELOMA
     Route: 048
     Dates: start: 20110929, end: 20120830
  2. ELOTUZUMAB [Suspect]
     Indication: PLASMA CELL MYELOMA
     Route: 042
     Dates: start: 20110929, end: 20120912
  3. DEXAMETHASONE (DEXAMETHASONE) (UNKNOWN) [Suspect]
     Indication: PLASMA CELL MYELOMA
     Route: 042
     Dates: start: 20110929, end: 20120830
  4. ACETAMINOPHEN (PARACETAMOL) [Concomitant]
  5. MVI (MVI) [Concomitant]
  6. ZOFRAN (ONDANSETRON HYDROCHLORIDE) [Concomitant]
  7. ROBITUSSIN (GUAIFENESIN) [Concomitant]
  8. AMOXICILLIN (AMOXICILLIN) [Concomitant]
  9. BENADRYL (DIPHENHYDRAMINE) [Concomitant]
  10. ASPIRIN (ACETYLSALICYLIC ACID) [Concomitant]
  11. STOOL SOFTENER (DOCUSATE SODIUM) [Concomitant]

REACTIONS (1)
  - Pneumonia [None]
